FAERS Safety Report 5908940-9 (Version None)
Quarter: 2008Q4

REPORT INFORMATION
  Report Type: 
  Country: None (occurrence: None)
  Receive Date: 20081006
  Receipt Date: 20080925
  Transmission Date: 20090506
  Serious: Yes (Other)
  Sender: FDA-Public Use
  Company Number: FR-ASTRAZENECA-2008CG01174

PATIENT
  Age: 13270 Day
  Sex: Female

DRUGS (3)
  1. DIPRIVAN [Suspect]
     Indication: INDUCTION OF ANAESTHESIA
     Route: 042
     Dates: start: 20020114, end: 20020114
  2. DIPRIVAN [Suspect]
     Route: 042
     Dates: start: 20080605, end: 20080605
  3. DIPRIVAN [Suspect]
     Route: 042
     Dates: start: 20080707, end: 20080707

REACTIONS (2)
  - INSOMNIA [None]
  - PSYCHOMOTOR SKILLS IMPAIRED [None]
